FAERS Safety Report 12159202 (Version 1)
Quarter: 2016Q1

REPORT INFORMATION
  Report Type: Spontaneous
  Country: US (occurrence: None)
  Receive Date: 20160307
  Receipt Date: 20160307
  Transmission Date: 20160526
  Serious: Yes (Life-Threatening, Hospitalization, Disabling)
  Sender: FDA-Public Use
  Company Number: None

PATIENT
  Age: 65 Year
  Sex: Female
  Weight: 72.58 kg

DRUGS (12)
  1. CITALOPRAM [Concomitant]
     Active Substance: CITALOPRAM HYDROBROMIDE
  2. MELOXICAM. [Concomitant]
     Active Substance: MELOXICAM
  3. OMEPRAZOLE. [Concomitant]
     Active Substance: OMEPRAZOLE
  4. ADVAIR HFA [Concomitant]
     Active Substance: FLUTICASONE PROPIONATE\SALMETEROL XINAFOATE
  5. LOSARTAN. [Concomitant]
     Active Substance: LOSARTAN
  6. FENOFIBRATE. [Concomitant]
     Active Substance: FENOFIBRATE
  7. SPIRIVA [Concomitant]
     Active Substance: TIOTROPIUM BROMIDE MONOHYDRATE
  8. ARICEPT [Concomitant]
     Active Substance: DONEPEZIL HYDROCHLORIDE
  9. PROAIR HFA [Concomitant]
     Active Substance: ALBUTEROL SULFATE
  10. NAMENDA XR [Suspect]
     Active Substance: MEMANTINE HYDROCHLORIDE
     Indication: AMNESIA
     Route: 048
     Dates: start: 20151202, end: 20160102
  11. GABAPENTIN. [Concomitant]
     Active Substance: GABAPENTIN
  12. L-THYROXINE [Concomitant]
     Active Substance: LEVOTHYROXINE

REACTIONS (3)
  - Cerebrovascular accident [None]
  - Chronic obstructive pulmonary disease [None]
  - Renal failure [None]

NARRATIVE: CASE EVENT DATE: 20160102
